FAERS Safety Report 5664764-1 (Version None)
Quarter: 2008Q1

REPORT INFORMATION
  Report Type: 
  Country: None (occurrence: None)
  Receive Date: 20080314
  Receipt Date: 20080307
  Transmission Date: 20080703
  Serious: Yes (Hospitalization)
  Sender: FDA-Public Use
  Company Number: US-JNJFOC-20080302476

PATIENT
  Sex: Male
  Weight: 120.66 kg

DRUGS (7)
  1. RISPERDAL [Suspect]
     Dosage: 4 MG IN AM, AND 5 MG IN PM DAILY
     Route: 048
  2. RISPERDAL [Suspect]
     Indication: SCHIZOPHRENIA, PARANOID TYPE
     Dosage: 2 MG IN AM AND 6 MG IN PM DAILY
     Route: 048
  3. DEPAKOTE [Concomitant]
     Indication: SCHIZOPHRENIA
     Route: 048
  4. TRICHOR [Concomitant]
     Indication: BLOOD CHOLESTEROL
     Route: 048
  5. NIASPAM [Concomitant]
     Indication: BLOOD CHOLESTEROL
     Route: 048
  6. LISINIPRIL [Concomitant]
     Indication: HYPERTENSION
  7. NORVASC [Concomitant]
     Indication: HYPERTENSION

REACTIONS (4)
  - HALLUCINATION [None]
  - HYPERTENSION [None]
  - HYPONATRAEMIA [None]
  - WEIGHT DECREASED [None]
